FAERS Safety Report 21794068 (Version 1)
Quarter: 2022Q4

REPORT INFORMATION
  Report Type: Report from Study
  Country: US (occurrence: US)
  Receive Date: 20221229
  Receipt Date: 20221229
  Transmission Date: 20230112
  Serious: No
  Sender: FDA-Public Use
  Company Number: US-ABBVIE-4251257

PATIENT
  Sex: Female

DRUGS (1)
  1. HUMIRA [Suspect]
     Active Substance: ADALIMUMAB
     Indication: Rheumatoid arthritis
     Dosage: LAST DATE ADMINISTRATION WAS TAKEN AS 2022 AND START DATE OF EVENT SIDE EFFECT WAS TAKEN AS 2022 ...
     Route: 058
     Dates: start: 20220523

REACTIONS (1)
  - Adverse drug reaction [Unknown]
